FAERS Safety Report 6794219-2 (Version None)
Quarter: 2010Q2

REPORT INFORMATION
  Report Type: 
  Country: None (occurrence: None)
  Receive Date: 20100625
  Receipt Date: 20100617
  Transmission Date: 20101027
  Serious: Yes (Hospitalization, Other)
  Sender: FDA-Public Use
  Company Number: US-BIOGENIDEC-2010BI013979

PATIENT
  Age: 47 Year
  Sex: Male
  Weight: 63 kg

DRUGS (2)
  1. AVONEX [Suspect]
     Indication: MULTIPLE SCLEROSIS
     Route: 030
     Dates: start: 20091101
  2. PEPCID [Concomitant]
     Indication: PROPHYLAXIS

REACTIONS (4)
  - ACUTE CORONARY SYNDROME [None]
  - CORONARY ARTERY OCCLUSION [None]
  - FATIGUE [None]
  - PAIN [None]
